FAERS Safety Report 7381119-2 (Version None)
Quarter: 2011Q1

REPORT INFORMATION
  Report Type: 
  Country: None (occurrence: None)
  Receive Date: 20110329
  Receipt Date: 20100819
  Transmission Date: 20110831
  Serious: No
  Sender: FDA-Public Use
  Company Number: US-AMGEN-KDL432403

PATIENT
  Age: 55 Year
  Sex: Male

DRUGS (4)
  1. SENSIPAR [Suspect]
     Indication: HYPERPARATHYROIDISM SECONDARY
     Dosage: 30 MG, QD
     Dates: start: 20100101
  2. SENSIPAR [Suspect]
     Dosage: 60 MG, QD
  3. SEVELAMER HCL [Concomitant]
     Dosage: UNK UNK, UNK
  4. DOXERCALCIFEROL [Concomitant]
     Dosage: UNK UNK, UNK

REACTIONS (1)
  - BLOOD PARATHYROID HORMONE INCREASED [None]
